FAERS Safety Report 25030427 (Version 1)
Quarter: 2025Q1

REPORT INFORMATION
  Report Type: Report from Study
  Country: US (occurrence: US)
  Receive Date: 20250303
  Receipt Date: 20250303
  Transmission Date: 20250408
  Serious: Yes (Other)
  Sender: GILEAD
  Company Number: US-GILEAD-2025-0705763

PATIENT
  Sex: Male

DRUGS (3)
  1. AZTREONAM LYSINE [Suspect]
     Active Substance: AZTREONAM LYSINE
     Indication: Cystic fibrosis
     Dosage: INHALE 1 ML (75 MG) 3 TIMES A DAY FOR 28 DAYS ON AND 28 DAYS OFF THEN REPEAT CYCLE
     Route: 055
     Dates: start: 2017
  2. PULMOZYME [Concomitant]
     Active Substance: DORNASE ALFA
  3. BRONCHITOL [Concomitant]
     Active Substance: MANNITOL

REACTIONS (1)
  - Cystic fibrosis [Not Recovered/Not Resolved]
